FAERS Safety Report 4728558-3 (Version None)
Quarter: 2005Q3

REPORT INFORMATION
  Report Type: 
  Country: None (occurrence: None)
  Receive Date: 20050727
  Receipt Date: 20050714
  Transmission Date: 20060218
  Serious: Yes (Hospitalization, Other)
  Sender: FDA-Public Use
  Company Number: 2005102266

PATIENT
  Age: 63 Year
  Sex: Female
  Weight: 78.4723 kg

DRUGS (3)
  1. NORVASC [Suspect]
     Indication: HYPERTENSION
     Dosage: 10 MG (10 MG, 1 IN 1 D) ORAL
     Route: 048
  2. HYDROCHLOROTHIAZIDE [Concomitant]
  3. ESTRACE [Concomitant]

REACTIONS (5)
  - GRIP STRENGTH DECREASED [None]
  - LIMB DISCOMFORT [None]
  - MEMORY IMPAIRMENT [None]
  - SPEECH DISORDER [None]
  - TRANSIENT ISCHAEMIC ATTACK [None]
